FAERS Safety Report 13665618 (Version 2)
Quarter: 2018Q2

REPORT INFORMATION
  Report Type: Spontaneous
  Country: IN (occurrence: IN)
  Receive Date: 20170619
  Receipt Date: 20180628
  Transmission Date: 20180711
  Serious: Yes (Life-Threatening, Hospitalization, Other)
  Sender: FDA-Public Use
  Company Number: IN-ELI_LILLY_AND_COMPANY-IN201706007429

PATIENT
  Age: 4 Year
  Sex: Female

DRUGS (1)
  1. FLUOXETINE HYDROCHLORIDE. [Suspect]
     Active Substance: FLUOXETINE HYDROCHLORIDE
     Indication: CHILDHOOD DEPRESSION
     Dosage: 20 MG, DAILY
     Route: 065

REACTIONS (7)
  - Hypertriglyceridaemia [Recovered/Resolved]
  - Drug reaction with eosinophilia and systemic symptoms [Recovered/Resolved]
  - Hepatitis [Recovered/Resolved]
  - Histiocytosis haematophagic [Recovered/Resolved]
  - Blood disorder [Unknown]
  - Lung infiltration [Recovered/Resolved]
  - Blood lactate dehydrogenase increased [Recovered/Resolved]
